FAERS Safety Report 18245118 (Version 2)
Quarter: 2021Q1

REPORT INFORMATION
  Report Type: Report from Study
  Country: None (occurrence: US)
  Receive Date: 20200909
  Receipt Date: 20210218
  Transmission Date: 20210419
  Serious: Yes (Other)
  Sender: FDA-Public Use
  Company Number: US-ABBVIE-20K-163-3424362-00

PATIENT
  Sex: Female
  Weight: 59.02 kg

DRUGS (15)
  1. HUMIRA [Suspect]
     Active Substance: ADALIMUMAB
     Indication: COLITIS ULCERATIVE
     Route: 058
     Dates: start: 2018
  2. HUMIRA [Suspect]
     Active Substance: ADALIMUMAB
     Route: 058
     Dates: start: 2019
  3. LUMIGAN [Concomitant]
     Active Substance: BIMATOPROST
     Indication: OCULAR DISCOMFORT
  4. PROZAC [Concomitant]
     Active Substance: FLUOXETINE HYDROCHLORIDE
     Indication: NERVOUS SYSTEM DISORDER
  5. LOMOTIL [Concomitant]
     Active Substance: ATROPINE SULFATE\DIPHENOXYLATE HYDROCHLORIDE
     Indication: DIARRHOEA
  6. BIMATOPROST. [Concomitant]
     Active Substance: BIMATOPROST
     Indication: DRY EYE
  7. METHSCOPOLAMINE BROMIDE. [Concomitant]
     Active Substance: METHSCOPOLAMINE BROMIDE
     Indication: SINUS DISORDER
  8. LEVOTHYROXINE. [Concomitant]
     Active Substance: LEVOTHYROXINE
     Indication: HYPOTHYROIDISM
  9. INFLUENZA SHOT [Concomitant]
     Active Substance: INFLUENZA VIRUS VACCINE
     Indication: PROPHYLAXIS
  10. MODERNA COVID?19 VACCINE [Concomitant]
     Active Substance: CX-024414
     Indication: COVID-19 IMMUNISATION
     Dosage: MODERNA
     Route: 030
     Dates: start: 20210210, end: 20210210
  11. PREDNISONE. [Concomitant]
     Active Substance: PREDNISONE
     Indication: IRITIS
  12. CHOLESTYRAMINE. [Concomitant]
     Active Substance: CHOLESTYRAMINE
     Indication: COLITIS ULCERATIVE
  13. CITRUCEL [Concomitant]
     Active Substance: METHYLCELLULOSE (4000 MPA.S)
     Indication: COLITIS ULCERATIVE
  14. METHOTREXATE. [Concomitant]
     Active Substance: METHOTREXATE
     Indication: COLITIS ULCERATIVE
  15. BRIMONIDINE TARTRATE. [Concomitant]
     Active Substance: BRIMONIDINE TARTRATE
     Indication: DRY EYE

REACTIONS (8)
  - Drug ineffective [Recovered/Resolved]
  - Iritis [Unknown]
  - Miosis [Unknown]
  - Altered visual depth perception [Unknown]
  - Ocular discomfort [Recovered/Resolved]
  - Glaucoma [Not Recovered/Not Resolved]
  - Feeling abnormal [Unknown]
  - Visual field defect [Not Recovered/Not Resolved]

NARRATIVE: CASE EVENT DATE: 2019
